FAERS Safety Report 14656466 (Version 11)
Quarter: 2021Q2

REPORT INFORMATION
  Report Type: Report from Study
  Country: CA (occurrence: CA)
  Receive Date: 20180319
  Receipt Date: 20210513
  Transmission Date: 20210716
  Serious: Yes (Other)
  Sender: FDA-Public Use
  Company Number: PHHY2018CA045562

PATIENT
  Age: 65 Year
  Sex: Female

DRUGS (4)
  1. SANDOSTATIN LAR DEPOT [Suspect]
     Active Substance: OCTREOTIDE ACETATE
  2. SANDOSTATIN LAR DEPOT [Suspect]
     Active Substance: OCTREOTIDE ACETATE
     Indication: CARCINOID TUMOUR
     Dosage: 20 MG, Q4W
     Route: 030
     Dates: start: 20180309
  3. SANDOSTATIN LAR DEPOT [Suspect]
     Active Substance: OCTREOTIDE ACETATE
  4. METHOTREXATE. [Concomitant]
     Active Substance: METHOTREXATE
     Indication: PRODUCT USED FOR UNKNOWN INDICATION
     Dosage: UNK
     Route: 065

REACTIONS (16)
  - Fall [Unknown]
  - Diarrhoea [Recovering/Resolving]
  - Blood glucose increased [Unknown]
  - Lung neoplasm malignant [Unknown]
  - Back pain [Unknown]
  - Blood pressure increased [Unknown]
  - Chronic obstructive pulmonary disease [Unknown]
  - Second primary malignancy [Unknown]
  - Carcinoid tumour [Unknown]
  - Upper limb fracture [Unknown]
  - Dyspnoea [Unknown]
  - Blood glucose decreased [Unknown]
  - Injection site haemorrhage [Unknown]
  - Tremor [Unknown]
  - Wheezing [Unknown]
  - Malignant neoplasm progression [Unknown]

NARRATIVE: CASE EVENT DATE: 20180310
